FAERS Safety Report 14283504 (Version 1)
Quarter: 2017Q4

REPORT INFORMATION
  Report Type: Spontaneous
  Country: US (occurrence: None)
  Receive Date: 20171213
  Receipt Date: 20171213
  Transmission Date: 20180321
  Serious: No
  Sender: FDA-Public Use
  Company Number: None

PATIENT
  Age: 64 Year
  Sex: Female

DRUGS (14)
  1. ALEVE [Concomitant]
     Active Substance: NAPROXEN SODIUM
  2. GREEN SOURCE [Concomitant]
  3. TYLENOL [Concomitant]
     Active Substance: ACETAMINOPHEN
  4. KONSYL [Concomitant]
     Active Substance: PSYLLIUM HUSK
  5. L-GLUTAMINE /00503401/ [Concomitant]
     Active Substance: GLUTAMINE
  6. MELOXICAM. [Concomitant]
     Active Substance: MELOXICAM
  7. METOPROL TAR [Concomitant]
  8. MAG CITRATE [Concomitant]
  9. VITAMIN B12 [Concomitant]
     Active Substance: CYANOCOBALAMIN
  10. CAPECITABINE 500 MG GENENTECH [Suspect]
     Active Substance: CAPECITABINE
     Indication: ANAL CANCER
     Dosage: 500MG TAB  2 TABS, TWICE DAILY ORAL
     Route: 048
     Dates: start: 20170721
  11. COCONUT OIL [Concomitant]
     Active Substance: COCONUT OIL
  12. LOSARTAN/HCT [Concomitant]
     Active Substance: HYDROCHLOROTHIAZIDE\LOSARTAN POTASSIUM
  13. TYLENOL/COD [Concomitant]
  14. VITAMIN D3 [Concomitant]
     Active Substance: CHOLECALCIFEROL

REACTIONS (3)
  - Therapy cessation [None]
  - Drug ineffective [None]
  - Skin disorder [None]

NARRATIVE: CASE EVENT DATE: 20161215
